FAERS Safety Report 5148499-X (Version None)
Quarter: 2006Q4

REPORT INFORMATION
  Report Type: 
  Country: None (occurrence: None)
  Receive Date: 20060918
  Receipt Date: 20060602
  Transmission Date: 20070319
  Serious: Yes (Other)
  Sender: FDA-Public Use
  Company Number: US-JNJFOC-20060501356

PATIENT
  Age: 40 Year
  Sex: Male
  Weight: 58.0604 kg

DRUGS (1)
  1. TOPAMAX [Suspect]
     Indication: MIGRAINE PROPHYLAXIS
     Dosage: 100 MG, 1 IN 1 DAY
     Dates: start: 20060301

REACTIONS (5)
  - ANOREXIA [None]
  - CHEST DISCOMFORT [None]
  - DYSPNOEA [None]
  - NAUSEA [None]
  - WEIGHT DECREASED [None]
